FAERS Safety Report 23170937 (Version 2)
Quarter: 2023Q4

REPORT INFORMATION
  Report Type: Spontaneous
  Country: JP (occurrence: JP)
  Receive Date: 20231110
  Receipt Date: 20231125
  Transmission Date: 20240109
  Serious: Yes (Other)
  Sender: FDA-Public Use
  Company Number: JP-BAYER-2023A160823

PATIENT
  Age: 52 Year
  Sex: Female

DRUGS (3)
  1. MIRENA [Suspect]
     Active Substance: LEVONORGESTREL
     Indication: Dysmenorrhoea
     Dosage: 20?G/DAY
     Route: 015
     Dates: start: 20210904, end: 20231028
  2. ESTRADIOL [Concomitant]
     Active Substance: ESTRADIOL
     Indication: Menopausal symptoms
     Dosage: UNK
     Route: 048
     Dates: start: 202108, end: 202109
  3. ESTRADIOL [Concomitant]
     Active Substance: ESTRADIOL
     Indication: Menopausal symptoms
     Dosage: DAILY DOSE 2 PUSH
     Route: 048
     Dates: start: 202108, end: 202109

REACTIONS (3)
  - Breast cancer female [Not Recovered/Not Resolved]
  - Unexpected vaginal bleeding on hormonal IUD [None]
  - Pain [None]

NARRATIVE: CASE EVENT DATE: 20210901
